FAERS Safety Report 16774578 (Version 10)
Quarter: 2020Q4

REPORT INFORMATION
  Report Type: Other
  Country: DE (occurrence: DE)
  Receive Date: 20190905
  Receipt Date: 20201230
  Transmission Date: 20210113
  Serious: Yes (Death, Life-Threatening, Hospitalization, Other)
  Sender: FDA-Public Use
  Company Number: DE-ROCHE-2391212

PATIENT
  Age: 54 Year
  Sex: Male

DRUGS (14)
  1. OCRELIZUMAB. [Suspect]
     Active Substance: OCRELIZUMAB
     Indication: RELAPSING MULTIPLE SCLEROSIS
     Route: 042
     Dates: start: 20181206, end: 20181206
  2. OCRELIZUMAB. [Suspect]
     Active Substance: OCRELIZUMAB
     Route: 042
     Dates: start: 20180612, end: 20180626
  3. METYPRED [Concomitant]
     Active Substance: METHYLPREDNISOLONE
     Indication: PROPHYLAXIS
     Route: 042
     Dates: start: 20180612, end: 20180612
  4. METYPRED [Concomitant]
     Active Substance: METHYLPREDNISOLONE
     Route: 042
     Dates: start: 20181206, end: 20181206
  5. DEXAMETHASONE. [Concomitant]
     Active Substance: DEXAMETHASONE
  6. METYPRED [Concomitant]
     Active Substance: METHYLPREDNISOLONE
     Route: 042
     Dates: start: 20180626, end: 20180626
  7. FENISTIL [Concomitant]
     Active Substance: DIMETHINDENE
     Route: 042
     Dates: start: 20181206, end: 20181206
  8. GABAPENTIN. [Concomitant]
     Active Substance: GABAPENTIN
     Route: 048
     Dates: start: 2005
  9. CITALOPRAM [Concomitant]
     Active Substance: CITALOPRAM HYDROBROMIDE
     Indication: DEPRESSION
     Route: 048
  10. MICTONORM [Concomitant]
     Active Substance: PROPIVERINE HYDROCHLORIDE
     Indication: INCONTINENCE
     Route: 048
  11. INHIXA [Concomitant]
     Active Substance: ENOXAPARIN SODIUM
  12. FENISTIL [Concomitant]
     Active Substance: DIMETHINDENE
     Indication: PROPHYLAXIS
     Route: 042
     Dates: start: 20180626, end: 20180626
  13. FENISTIL [Concomitant]
     Active Substance: DIMETHINDENE
     Route: 042
     Dates: start: 20180612, end: 20180612
  14. NOVAMINSULFON [Concomitant]
     Active Substance: METAMIZOLE

REACTIONS (9)
  - Seizure [Recovered/Resolved]
  - Multiple sclerosis relapse [Unknown]
  - Hernia [Not Recovered/Not Resolved]
  - Faecaloma [Unknown]
  - Bronchial carcinoma [Fatal]
  - Seizure [Recovered/Resolved]
  - Faecaloma [Recovered/Resolved]
  - Multiple sclerosis [Unknown]
  - Vomiting [Unknown]

NARRATIVE: CASE EVENT DATE: 201812
